FAERS Safety Report 17502400 (Version 6)
Quarter: 2021Q3

REPORT INFORMATION
  Report Type: Other
  Country: US (occurrence: US)
  Receive Date: 20200305
  Receipt Date: 20210701
  Transmission Date: 20211014
  Serious: Yes (Other)
  Sender: FDA-Public Use
  Company Number: US-ROCHE-2323826

PATIENT
  Age: 66 Year
  Sex: Female
  Weight: 70.82 kg

DRUGS (29)
  1. AMPYRA [Concomitant]
     Active Substance: DALFAMPRIDINE
  2. GABAPENTIN. [Concomitant]
     Active Substance: GABAPENTIN
     Indication: NEURALGIA
     Route: 048
     Dates: start: 20210330
  3. VENLAFAXINE [Concomitant]
     Active Substance: VENLAFAXINE HYDROCHLORIDE
     Indication: NEURITIS
     Dates: start: 20210330
  4. DALFAMPRIDINE. [Concomitant]
     Active Substance: DALFAMPRIDINE
     Indication: GAIT DISTURBANCE
     Dosage: ONGOING: YES
     Route: 048
  5. NAPROXEN. [Concomitant]
     Active Substance: NAPROXEN
     Indication: HEADACHE
  6. NEURONTIN [Concomitant]
     Active Substance: GABAPENTIN
  7. COENZYME Q10 [Concomitant]
     Active Substance: DIETARY SUPPLEMENT\UBIDECARENONE
     Dosage: TAKES OCCASIONAL A COUPLE TIMES A DAY WHILE EATING
     Dates: start: 2001
  8. OCREVUS [Suspect]
     Active Substance: OCRELIZUMAB
     Route: 042
     Dates: start: 2019
  9. NORCO [Concomitant]
     Active Substance: ACETAMINOPHEN\HYDROCODONE BITARTRATE
     Dosage: 7.5 MG ?325 MG
  10. MEDROL [Concomitant]
     Active Substance: METHYLPREDNISOLONE
  11. OMEPRAZOLE. [Concomitant]
     Active Substance: OMEPRAZOLE
     Indication: HIATUS HERNIA
     Dates: start: 2018
  12. OCREVUS [Suspect]
     Active Substance: OCRELIZUMAB
     Dosage: 11/MAR/2019: FIRST FULL DOSE
     Route: 042
     Dates: start: 2018
  13. VENLAFAXINE [Concomitant]
     Active Substance: VENLAFAXINE HYDROCHLORIDE
     Indication: NEURALGIA
  14. MORPHINE [Concomitant]
     Active Substance: MORPHINE
     Dosage: 25 MG/ML INJECTION SOLUTION
  15. NEURONTIN [Concomitant]
     Active Substance: GABAPENTIN
  16. PREDNISOLONE. [Concomitant]
     Active Substance: PREDNISOLONE
  17. BACTRIM DS [Concomitant]
     Active Substance: SULFAMETHOXAZOLE\TRIMETHOPRIM
     Dosage: 800 MG TO 160 MG
  18. FENTANYL. [Concomitant]
     Active Substance: FENTANYL
     Dosage: 25 MCG /HR
  19. VENLAFAXINE [Concomitant]
     Active Substance: VENLAFAXINE HYDROCHLORIDE
     Indication: DEPRESSION
     Dosage: DOSE 225; ONGOING YES
     Route: 048
     Dates: start: 2001, end: 20210330
  20. FOSAMAX [Concomitant]
     Active Substance: ALENDRONATE SODIUM
     Indication: SPINAL STENOSIS
     Dosage: ONGOING: YES
     Route: 048
  21. TUMS [Concomitant]
     Active Substance: CALCIUM CARBONATE
  22. GABAPENTIN. [Concomitant]
     Active Substance: GABAPENTIN
     Dates: start: 2001, end: 20210330
  23. BACLOFEN. [Concomitant]
     Active Substance: BACLOFEN
     Dates: start: 2005
  24. OCREVUS [Suspect]
     Active Substance: OCRELIZUMAB
     Indication: SECONDARY PROGRESSIVE MULTIPLE SCLEROSIS
     Dosage: ONGOING; YES?DATE OF TREATMENT: ,11?SEP?2018,18?MAY?2020,25?MAR?2019,
     Route: 042
     Dates: start: 20180824
  25. OCREVUS [Suspect]
     Active Substance: OCRELIZUMAB
     Route: 042
     Dates: start: 20180911
  26. REQUIP [Concomitant]
     Active Substance: ROPINIROLE HYDROCHLORIDE
     Indication: RESTLESS LEGS SYNDROME
     Dosage: ONGOING YES
     Route: 048
  27. NAPROXEN. [Concomitant]
     Active Substance: NAPROXEN
     Indication: MYALGIA
     Dosage: ONGOING:YES
     Route: 048
  28. BACLOFEN. [Concomitant]
     Active Substance: BACLOFEN
  29. ROPINIROL [Concomitant]
     Active Substance: ROPINIROLE
     Dates: start: 2019

REACTIONS (39)
  - Body height decreased [Unknown]
  - Vestibular disorder [Unknown]
  - Somnolence [Not Recovered/Not Resolved]
  - Headache [Recovered/Resolved]
  - Somnambulism [Not Recovered/Not Resolved]
  - Postoperative wound infection [Unknown]
  - Neck pain [Unknown]
  - Migraine without aura [Unknown]
  - Pain in extremity [Unknown]
  - Affective disorder [Unknown]
  - Muscle spasms [Unknown]
  - Multiple sclerosis relapse [Recovered/Resolved]
  - Hand fracture [Recovered/Resolved]
  - Fall [Unknown]
  - Hyperglycaemia [Unknown]
  - Weight increased [Unknown]
  - Pain [Unknown]
  - Chest discomfort [Unknown]
  - Mental status changes [Unknown]
  - Ataxia [Unknown]
  - Tremor [Unknown]
  - Seizure [Unknown]
  - Urinary retention [Unknown]
  - Optic neuritis [Unknown]
  - Staphylococcal infection [Unknown]
  - Off label use [Unknown]
  - Complex regional pain syndrome [Unknown]
  - Back pain [Unknown]
  - Carpal tunnel syndrome [Unknown]
  - Nausea [Recovered/Resolved]
  - Peripheral swelling [Unknown]
  - Dyspnoea [Unknown]
  - Thoracic vertebral fracture [Unknown]
  - Upper limb fracture [Recovered/Resolved]
  - Deafness unilateral [Unknown]
  - Herpes virus infection [Unknown]
  - Intervertebral disc degeneration [Unknown]
  - Paraesthesia [Unknown]
  - Ocular vascular disorder [Not Recovered/Not Resolved]

NARRATIVE: CASE EVENT DATE: 2019
